FAERS Safety Report 23190046 (Version 1)
Quarter: 2023Q4

REPORT INFORMATION
  Report Type: Spontaneous
  Country: US (occurrence: US)
  Receive Date: 20231116
  Receipt Date: 20231116
  Transmission Date: 20240110
  Serious: Yes (Other)
  Sender: FDA-Public Use
  Company Number: US-GLAXOSMITHKLINE-US2023155393

PATIENT

DRUGS (1)
  1. BREO ELLIPTA [Suspect]
     Active Substance: FLUTICASONE FUROATE\VILANTEROL TRIFENATATE
     Indication: Bronchitis
     Dosage: UNK, QD,100/25MCG

REACTIONS (4)
  - Pneumonia [Unknown]
  - Pulmonary fibrosis [Unknown]
  - Product use in unapproved indication [Unknown]
  - Product dose omission issue [Unknown]
